FAERS Safety Report 9472409 (Version 1)
Quarter: 2013Q3

REPORT INFORMATION
  Report Type: Spontaneous
  Country: GB (occurrence: GB)
  Receive Date: 20130823
  Receipt Date: 20130823
  Transmission Date: 20140515
  Serious: Yes (Hospitalization, Other)
  Sender: FDA-Public Use
  Company Number: GB-PFIZER INC-2013242368

PATIENT
  Sex: Male

DRUGS (2)
  1. LYRICA [Suspect]
     Dosage: UNK
  2. METHADONE [Concomitant]
     Indication: DRUG ABUSE

REACTIONS (3)
  - Drug abuse [Unknown]
  - Coma [Unknown]
  - Loss of consciousness [Unknown]
